FAERS Safety Report 17158984 (Version 2)
Quarter: 2019Q4

REPORT INFORMATION
  Report Type: Report from Study
  Country: US (occurrence: US)
  Receive Date: 20191216
  Receipt Date: 20191219
  Transmission Date: 20200122
  Serious: Yes (Hospitalization)
  Sender: FDA-Public Use
  Company Number: US-BEIGENE AUS PTY LTD-BGN-2019-002131

PATIENT

DRUGS (3)
  1. ALLOPURINOL. [Concomitant]
     Active Substance: ALLOPURINOL
     Indication: PROPHYLAXIS
     Dosage: 300 MILLIGRAM, QD
     Route: 048
     Dates: start: 20191127
  2. FLUTICASONE. [Concomitant]
     Active Substance: FLUTICASONE
     Indication: RHINITIS ALLERGIC
     Dosage: 2 DOSAGE FORM, QD
     Route: 045
     Dates: start: 20150810
  3. ZANUBRUTINIB [Suspect]
     Active Substance: ZANUBRUTINIB
     Indication: CHRONIC LYMPHOCYTIC LEUKAEMIA
     Dosage: 160 MILLIGRAM, BID
     Route: 048
     Dates: start: 20191202, end: 20191206

REACTIONS (2)
  - Sepsis [Recovered/Resolved]
  - Tumour lysis syndrome [Recovered/Resolved]

NARRATIVE: CASE EVENT DATE: 20191206
